FAERS Safety Report 20625722 (Version 1)
Quarter: 2022Q1

REPORT INFORMATION
  Report Type: Spontaneous
  Country: US (occurrence: None)
  Receive Date: 20220323
  Receipt Date: 20220323
  Transmission Date: 20220424
  Serious: No
  Sender: FDA-Public Use
  Company Number: US-ROCHE-2765484

PATIENT
  Age: 65 Year
  Sex: Female

DRUGS (3)
  1. ERIVEDGE [Suspect]
     Active Substance: VISMODEGIB
     Indication: Malignant melanoma
     Route: 065
  2. ERIVEDGE [Suspect]
     Active Substance: VISMODEGIB
     Indication: Squamous cell carcinoma
  3. ERIVEDGE [Suspect]
     Active Substance: VISMODEGIB
     Indication: Neoplasm

REACTIONS (3)
  - Alopecia [Unknown]
  - Off label use [Unknown]
  - Intentional product use issue [Unknown]
